FAERS Safety Report 15222080 (Version 6)
Quarter: 2020Q2

REPORT INFORMATION
  Report Type: Spontaneous
  Country: US (occurrence: US)
  Receive Date: 20180731
  Receipt Date: 20200608
  Transmission Date: 20200713
  Serious: No
  Sender: FDA-Public Use
  Company Number: US-PFIZER INC-2018295282

PATIENT
  Age: 76 Year
  Sex: Female
  Weight: 78.91 kg

DRUGS (11)
  1. BUSPAR [Concomitant]
     Active Substance: BUSPIRONE HYDROCHLORIDE
     Indication: ANXIETY
     Dosage: 10 MG, 2X/DAY
  2. KLONOPIN [Concomitant]
     Active Substance: CLONAZEPAM
     Indication: ANXIETY
     Dosage: 0.5 MG, 2X/DAY (AS NEEDED)
  3. REPATHA [Concomitant]
     Active Substance: EVOLOCUMAB
     Indication: BLOOD CHOLESTEROL ABNORMAL
     Dosage: 1 ML, UNK [EVERY 14 DAYS]
  4. LYRICA [Suspect]
     Active Substance: PREGABALIN
     Indication: FIBROMYALGIA
     Dosage: 200 MG, THREE TIMES A DAY
     Route: 048
     Dates: start: 20120207
  5. LYRICA [Suspect]
     Active Substance: PREGABALIN
     Dosage: 200 MG, ONCE DAILY
     Route: 048
     Dates: start: 201806, end: 201807
  6. LYRICA [Suspect]
     Active Substance: PREGABALIN
     Dosage: 200 MG, 2X/DAY
     Route: 048
  7. BACLOFEN. [Concomitant]
     Active Substance: BACLOFEN
     Dosage: 10 MG, AS NEEDED (AT NIGHT)
  8. LYRICA [Suspect]
     Active Substance: PREGABALIN
     Indication: NECK PAIN
     Dosage: 200 MG, THRICE DAILY
     Route: 048
     Dates: start: 200806
  9. ALEVE [Concomitant]
     Active Substance: NAPROXEN SODIUM
     Indication: PAIN
     Dosage: 440 MG, AS NEEDED (TAKES 2 AS NEEDED)
  10. AMBIEN [Concomitant]
     Active Substance: ZOLPIDEM TARTRATE
     Indication: INSOMNIA
     Dosage: 10 MG, AS NEEDED (AT NIGHT)
  11. CYMBALTA [Concomitant]
     Active Substance: DULOXETINE HYDROCHLORIDE
     Indication: DEPRESSION
     Dosage: 60 MG, DAILY

REACTIONS (10)
  - Speech disorder [Unknown]
  - Asthenia [Unknown]
  - Crying [Unknown]
  - Emotional disorder [Unknown]
  - Intentional product use issue [Unknown]
  - Blood pressure increased [Not Recovered/Not Resolved]
  - Pain [Unknown]
  - Anxiety [Not Recovered/Not Resolved]
  - Depressed mood [Unknown]
  - Condition aggravated [Not Recovered/Not Resolved]

NARRATIVE: CASE EVENT DATE: 201806
